FAERS Safety Report 22376440 (Version 1)
Quarter: 2023Q2

REPORT INFORMATION
  Report Type: Spontaneous
  Country: DK (occurrence: DK)
  Receive Date: 20230527
  Receipt Date: 20230527
  Transmission Date: 20230721
  Serious: Yes (Hospitalization, Other)
  Sender: FDA-Public Use
  Company Number: DK-SKF-000041

PATIENT
  Age: 66 Year
  Sex: Female
  Weight: 74 kg

DRUGS (3)
  1. PREGABALIN [Suspect]
     Active Substance: PREGABALIN
     Indication: Suicide attempt
     Route: 065
  2. ZOPICLONE [Suspect]
     Active Substance: ZOPICLONE
     Indication: Suicide attempt
     Dosage: 30 TABLETS OF ZOPICLONE 7.5MG (TOTAL DOSE 225 MG)
     Route: 065
  3. RISPERIDONE [Concomitant]
     Active Substance: RISPERIDONE
     Indication: Product used for unknown indication
     Route: 065

REACTIONS (19)
  - Renal injury [Recovered/Resolved]
  - Loss of consciousness [Recovered/Resolved]
  - Suicide attempt [Unknown]
  - Hyperkalaemia [Unknown]
  - Rhabdomyolysis [Recovered/Resolved]
  - Neurotoxicity [Recovered/Resolved]
  - Respiratory acidosis [Unknown]
  - Metabolic acidosis [Unknown]
  - Hepatic steatosis [Unknown]
  - Nervous system disorder [Unknown]
  - Areflexia [Unknown]
  - Toxicity to various agents [Unknown]
  - Drug level above therapeutic [Recovered/Resolved]
  - Cognitive disorder [Unknown]
  - Leukocytosis [Unknown]
  - Hypotension [Unknown]
  - Hypotonia [Unknown]
  - Coma [Recovered/Resolved]
  - Overdose [Unknown]
